FAERS Safety Report 7053213-7 (Version None)
Quarter: 2010Q4

REPORT INFORMATION
  Report Type: 
  Country: None (occurrence: None)
  Receive Date: 20101020
  Receipt Date: 20101006
  Transmission Date: 20110411
  Serious: Yes (Hospitalization, Other)
  Sender: FDA-Public Use
  Company Number: US-ELI_LILLY_AND_COMPANY-US201008001195

PATIENT
  Sex: Female
  Weight: 84.354 kg

DRUGS (9)
  1. FORTEO [Suspect]
     Indication: OSTEOPOROSIS
     Dosage: 20 UG, DAILY (1/D)
     Dates: start: 20091023, end: 20100527
  2. FORTEO [Suspect]
     Dosage: 20 UG, DAILY (1/D)
  3. CARBIDOPA AND LEVODOPA [Concomitant]
     Indication: PARKINSON'S DISEASE
  4. REMERON [Concomitant]
  5. VITAMIN D [Concomitant]
  6. CALCIUM [Concomitant]
  7. PRILOSEC [Concomitant]
  8. CO Q-10 [Concomitant]
  9. VITAMIN B COMPLEX CAP [Concomitant]

REACTIONS (10)
  - ARTHRALGIA [None]
  - ATELECTASIS [None]
  - COUGH [None]
  - DYSPNOEA [None]
  - FALL [None]
  - MUSCULOSKELETAL STIFFNESS [None]
  - NAUSEA [None]
  - PAIN [None]
  - PLEURAL EFFUSION [None]
  - SPLENIC RUPTURE [None]
